FAERS Safety Report 7225869-7 (Version None)
Quarter: 2011Q1

REPORT INFORMATION
  Report Type: 
  Country: None (occurrence: None)
  Receive Date: 20110113
  Receipt Date: 20110110
  Transmission Date: 20110831
  Serious: Yes (Hospitalization, Other)
  Sender: FDA-Public Use
  Company Number: US-ABBOTT-11P-163-0696366-00

PATIENT
  Sex: Male
  Weight: 108.96 kg

DRUGS (5)
  1. HYDROCODONE [Concomitant]
     Indication: FIBROMYALGIA
  2. DEPAKOTE ER [Suspect]
     Indication: BIPOLAR DISORDER
     Dates: start: 20091201, end: 20110107
  3. KLONOPIN [Concomitant]
     Indication: ANXIETY
  4. HYDROCODONE [Concomitant]
     Indication: BACK PAIN
  5. DOXEPIN HCL [Concomitant]
     Indication: INSOMNIA

REACTIONS (11)
  - ABDOMINAL PAIN [None]
  - HYPERHIDROSIS [None]
  - DIZZINESS [None]
  - PANCREATIC DUCT STENOSIS [None]
  - PAIN [None]
  - PANCREATITIS [None]
  - VOMITING [None]
  - LIPASE INCREASED [None]
  - BLOOD AMYLASE INCREASED [None]
  - MALAISE [None]
  - HAEMATEMESIS [None]
